FAERS Safety Report 5176856-4 (Version None)
Quarter: 2006Q4

REPORT INFORMATION
  Report Type: 
  Country: None (occurrence: None)
  Receive Date: 20061218
  Receipt Date: 20061030
  Transmission Date: 20070319
  Serious: Yes (Hospitalization)
  Sender: FDA-Public Use
  Company Number: US-JNJFOC-20060405602

PATIENT
  Sex: Female
  Weight: 55.79 kg

DRUGS (4)
  1. ORTHO EVRA [Suspect]
     Route: 062
  2. ORTHO EVRA [Suspect]
     Indication: DRUG USE FOR UNKNOWN INDICATION
     Route: 062
  3. TRIPHASIL-28 [Suspect]
     Indication: DRUG USE FOR UNKNOWN INDICATION
  4. TOPAMAX [Concomitant]
     Indication: MIGRAINE

REACTIONS (3)
  - NEPHROLITHIASIS [None]
  - RENAL ABSCESS [None]
  - THROMBOSIS [None]
